FAERS Safety Report 8158213-1 (Version None)
Quarter: 2012Q1

REPORT INFORMATION
  Report Type: 
  Country: None (occurrence: None)
  Receive Date: 20120222
  Receipt Date: 20120214
  Transmission Date: 20120608
  Serious: Yes (Other)
  Sender: FDA-Public Use
  Company Number: FR-BRISTOL-MYERS SQUIBB COMPANY-16347866

PATIENT
  Age: 38 Year
  Sex: Female

DRUGS (3)
  1. REYATAZ [Suspect]
     Indication: ANTIRETROVIRAL THERAPY
     Dosage: NO OF COURSES:1
     Route: 048
  2. TRUVADA [Suspect]
     Indication: ANTIRETROVIRAL THERAPY
     Dosage: NO OF COURSES:1
     Route: 048
  3. NORVIR [Suspect]
     Indication: ANTIRETROVIRAL THERAPY
     Dosage: NO OF COURSES:1
     Route: 048

REACTIONS (2)
  - ABORTION INDUCED [None]
  - PREGNANCY [None]
